FAERS Safety Report 8823460 (Version 1)
Quarter: 2012Q4

REPORT INFORMATION
  Report Type: 
  Country: US (occurrence: US)
  Receive Date: 20121003
  Receipt Date: 20121003
  Transmission Date: 20130627
  Serious: Yes (Disabling)
  Sender: FDA-Public Use
  Company Number: US-MERCK-1209USA011109

PATIENT
  Sex: Female
  Weight: 97.51 kg

DRUGS (8)
  1. ZETIA [Suspect]
     Indication: BLOOD CHOLESTEROL INCREASED
     Dosage: 10 mg, qd
     Route: 048
  2. XANAX [Suspect]
     Indication: ANXIETY
     Dosage: 1mg, bid
     Route: 048
     Dates: start: 2002, end: 200909
  3. XANAX [Suspect]
     Dosage: 1.5 DF, UNK
     Route: 048
     Dates: start: 200909
  4. SERTRALINE HYDROCHLORIDE [Suspect]
     Indication: PAIN
     Dosage: 50 mg, bid
     Dates: start: 2008
  5. TRICOR [Suspect]
     Indication: BLOOD CHOLESTEROL INCREASED
     Dosage: 145 mg, qd
  6. LEVOXYL [Concomitant]
     Indication: HYPOTHYROIDISM
     Dosage: 0.05 mg, qam
  7. FOLTX [Concomitant]
     Indication: ROUTINE HEALTH MAINTENANCE
     Dosage: UNK, qd
  8. ADVIL [Concomitant]
     Indication: PAIN
     Dosage: 200 mg, prn
     Dates: start: 2007

REACTIONS (7)
  - Gait disturbance [Not Recovered/Not Resolved]
  - Pain [Not Recovered/Not Resolved]
  - Hepatic enzyme increased [Unknown]
  - Blood cholesterol increased [Unknown]
  - Nausea [Not Recovered/Not Resolved]
  - Wrong technique in drug usage process [Unknown]
  - Drug ineffective [Unknown]
